FAERS Safety Report 11265580 (Version 1)
Quarter: 2015Q3

REPORT INFORMATION
  Report Type: Spontaneous
  Country: FR (occurrence: FR)
  Receive Date: 20150713
  Receipt Date: 20150713
  Transmission Date: 20151125
  Serious: Yes (Hospitalization)
  Sender: FDA-Public Use
  Company Number: FR-PFIZER INC-2015226558

PATIENT
  Age: 79 Year
  Sex: Female
  Weight: 62 kg

DRUGS (4)
  1. MIANSERIN [Concomitant]
     Active Substance: MIANSERIN
     Dosage: 60 MG, DAILY
  2. STABLON [Concomitant]
     Active Substance: TIANEPTINE
     Dosage: 25 MG, DAILY
  3. AROMASINE [Suspect]
     Active Substance: EXEMESTANE
     Indication: BREAST CANCER
     Dosage: 25 MG, 1X/DAY
     Route: 048
     Dates: start: 20150519
  4. LEXOMIL [Concomitant]
     Active Substance: BROMAZEPAM
     Dosage: UNK, 1X/DAY

REACTIONS (1)
  - Deep vein thrombosis [Not Recovered/Not Resolved]

NARRATIVE: CASE EVENT DATE: 20150614
